FAERS Safety Report 5636169-0 (Version None)
Quarter: 2008Q1

REPORT INFORMATION
  Report Type: 
  Country: None (occurrence: None)
  Receive Date: 20080221
  Receipt Date: 20080221
  Transmission Date: 20080703
  Serious: Yes (Other)
  Sender: FDA-Public Use
  Company Number: None

PATIENT
  Sex: Female
  Weight: 63.5036 kg

DRUGS (1)
  1. NEOMYCIN AND POLYMYXIN B SULFATES AND HYDROCORTISONE [Suspect]
     Indication: FOLLICULITIS
     Dosage: ONCE QTT 2XD 2XD OPHTHALMIC
     Route: 047
     Dates: start: 20041201, end: 20071219

REACTIONS (4)
  - EYE IRRITATION [None]
  - EYE PAIN [None]
  - MEDICATION RESIDUE [None]
  - PHARMACEUTICAL PRODUCT COMPLAINT [None]
